FAERS Safety Report 26183944 (Version 1)
Quarter: 2025Q4

REPORT INFORMATION
  Report Type: Spontaneous
  Country: US (occurrence: US)
  Receive Date: 20251222
  Receipt Date: 20251222
  Transmission Date: 20260118
  Serious: No
  Sender: BIOGEN
  Company Number: US-BIOGEN-2096142

PATIENT
  Age: 44 Year
  Sex: Female

DRUGS (1)
  1. QALSODY [Suspect]
     Active Substance: TOFERSEN
     Indication: Product used for unknown indication

REACTIONS (6)
  - Procedural pain [Unknown]
  - Post procedural complication [Unknown]
  - Dizziness [Unknown]
  - Muscular weakness [Unknown]
  - Headache [Unknown]
  - Inflammation [Unknown]
